FAERS Safety Report 18589943 (Version 1)
Quarter: 2020Q4

REPORT INFORMATION
  Report Type: Spontaneous
  Country: US (occurrence: US)
  Receive Date: 20201207
  Receipt Date: 20201207
  Transmission Date: 20210114
  Serious: Yes (Disabling, Other)
  Sender: FDA-Public Use
  Company Number: None

PATIENT
  Age: 50 Year
  Sex: Male
  Weight: 80.55 kg

DRUGS (12)
  1. FLAGYL [Suspect]
     Active Substance: METRONIDAZOLE\METRONIDAZOLE HYDROCHLORIDE
  2. ANODYNE THERAPY INFRARED LIGHT [Concomitant]
  3. PROBIOTICS [Concomitant]
     Active Substance: PROBIOTICS NOS
  4. CIALIS [Concomitant]
     Active Substance: TADALAFIL
  5. CIPRO [Suspect]
     Active Substance: CIPROFLOXACIN HYDROCHLORIDE
     Indication: DIVERTICULITIS
     Dosage: ?          QUANTITY:1 TABLET(S);?
  6. SUMATRIPTAN SUCC [Concomitant]
     Active Substance: SUMATRIPTAN SUCCINATE
  7. BIOTIN [Concomitant]
     Active Substance: BIOTIN
  8. MILD HYPERBARIC OXYGEN [Concomitant]
  9. NERVE RENEW [Concomitant]
     Active Substance: DIETARY SUPPLEMENT
  10. GRALISE [Concomitant]
     Active Substance: GABAPENTIN
  11. MAGNESIUM [Concomitant]
     Active Substance: MAGNESIUM
  12. TAMSULOSIN HCL [Concomitant]
     Active Substance: TAMSULOSIN HYDROCHLORIDE

REACTIONS (10)
  - Neuropathy peripheral [None]
  - Fatigue [None]
  - Loss of consciousness [None]
  - Dizziness [None]
  - Arthropathy [None]
  - Tinnitus [None]
  - Fall [None]
  - Coordination abnormal [None]
  - Muscular weakness [None]
  - Feeling abnormal [None]

NARRATIVE: CASE EVENT DATE: 20190614
